FAERS Safety Report 9282637 (Version 1)
Quarter: 2013Q2

REPORT INFORMATION
  Report Type: Spontaneous
  Country: US (occurrence: None)
  Receive Date: 20130509
  Receipt Date: 20130509
  Transmission Date: 20140414
  Serious: Yes (Other)
  Sender: FDA-Public Use
  Company Number: None

PATIENT
  Age: 43 Year
  Sex: Male
  Weight: 117.94 kg

DRUGS (1)
  1. CRESTOR [Suspect]
     Indication: CARDIAC DISORDER
     Dosage: 1 PILL, DAILY, PO
     Route: 048

REACTIONS (2)
  - Rhabdomyolysis [None]
  - Back pain [None]
